FAERS Safety Report 6307867-0 (Version None)
Quarter: 2009Q3

REPORT INFORMATION
  Report Type: 
  Country: None (occurrence: None)
  Receive Date: 20090813
  Receipt Date: 20090806
  Transmission Date: 20100115
  Serious: Yes (Death, Hospitalization)
  Sender: FDA-Public Use
  Company Number: MY-AVENTIS-200917961GDDC

PATIENT
  Age: 37 Year
  Sex: Male

DRUGS (5)
  1. TAXOTERE [Suspect]
     Route: 042
     Dates: start: 20090325, end: 20090325
  2. CISPLATIN [Concomitant]
     Route: 042
  3. 5-FU                               /00098801/ [Concomitant]
     Route: 042
  4. GRANISETRON HCL [Concomitant]
     Indication: PREMEDICATION
     Route: 042
  5. DEXAMETHASONE [Concomitant]
     Indication: PREMEDICATION
     Route: 042

REACTIONS (4)
  - DIARRHOEA [None]
  - HYPONATRAEMIA [None]
  - LEUKOPENIA [None]
  - SEPTIC SHOCK [None]
